FAERS Safety Report 5162154-1 (Version None)
Quarter: 2006Q4

REPORT INFORMATION
  Report Type: 
  Country: None (occurrence: None)
  Receive Date: 20061120
  Receipt Date: 20061108
  Transmission Date: 20070319
  Serious: Yes (Hospitalization, Other)
  Sender: FDA-Public Use
  Company Number: HQWYE018209NOV06

PATIENT
  Age: 74 Year
  Sex: Male

DRUGS (5)
  1. INIPOMP (PANTOPRAZOLE, TABLET, DELAYED RELEASE) [Suspect]
     Indication: GASTROINTESTINAL HAEMORRHAGE
     Dosage: ^DF^, ORAL
     Route: 048
     Dates: start: 20060601, end: 20060901
  2. INIPOMP (PANTOPRAZOLE, TABLET, DELAYED RELEASE) [Suspect]
     Indication: PEPTIC ULCER
     Dosage: ^DF^, ORAL
     Route: 048
     Dates: start: 20060601, end: 20060901
  3. STABLON (TIANEPTINE) [Concomitant]
  4. LASIX [Concomitant]
  5. FERROUS SULFATE TAB [Concomitant]

REACTIONS (4)
  - AGRANULOCYTOSIS [None]
  - DRUG TOXICITY [None]
  - LABORATORY TEST ABNORMAL [None]
  - PYREXIA [None]
